FAERS Safety Report 9091296 (Version 2)
Quarter: 2013Q2

REPORT INFORMATION
  Report Type: Spontaneous
  Country: IT (occurrence: IT)
  Receive Date: 20130131
  Receipt Date: 20130405
  Transmission Date: 20140414
  Serious: Yes (Death, Other)
  Sender: FDA-Public Use
  Company Number: IT-PFIZER INC-2013015854

PATIENT
  Age: 58 Year
  Sex: Male

DRUGS (2)
  1. SUTENT [Suspect]
     Indication: RENAL CELL CARCINOMA
     Dosage: 25 MG, CYCLIC (1 TABLET DAILY FOR 4 WEEKS AND THEN STOP FOR TWO WEEKS)
     Route: 048
     Dates: start: 20060601, end: 20080701
  2. ZOMETA [Suspect]
     Indication: RENAL CELL CARCINOMA
     Dosage: 4 MG, MONTHLY
     Route: 042
     Dates: start: 20050718, end: 20060501

REACTIONS (1)
  - Osteonecrosis of jaw [Fatal]
